FAERS Safety Report 18142476 (Version 1)
Quarter: 2020Q3

REPORT INFORMATION
  Report Type: Spontaneous
  Country: IT (occurrence: IT)
  Receive Date: 20200813
  Receipt Date: 20200813
  Transmission Date: 20201103
  Serious: Yes (Hospitalization)
  Sender: FDA-Public Use
  Company Number: IT-TEVA-2020-IT-1813208

PATIENT
  Age: 59 Year
  Sex: Male

DRUGS (8)
  1. PANTOPRAZOLE [Suspect]
     Active Substance: PANTOPRAZOLE
     Dosage: 1120 MG, ADDITIONAL DRUG INFORMATION : OVERDOSE
     Route: 048
     Dates: start: 20200725, end: 20200725
  2. RANEXA [Suspect]
     Active Substance: RANOLAZINE
     Dosage: 45000 MG, ADDITIONAL DRUG INFORMATION : OVERDOSE
     Route: 048
     Dates: start: 20200725, end: 20200725
  3. PLAVIX [Suspect]
     Active Substance: CLOPIDOGREL BISULFATE
     Dosage: 2100 MG, ADDITIONAL DRUG INFORMATION : OVERDOSE
     Route: 048
     Dates: start: 20200725, end: 20200725
  4. XANAX [Suspect]
     Active Substance: ALPRAZOLAM
     Dosage: 15 MG.   ?ADDITIONAL DRUG INFORMATION : OVERDOSE
     Route: 048
     Dates: start: 20200725, end: 20200725
  5. RAMIPRIL. [Suspect]
     Active Substance: RAMIPRIL
     Dosage: 70 MG, ADDITIONAL DRUG INFORMATION : OVERDOSE
     Route: 048
     Dates: start: 20200725, end: 20200725
  6. NEBIVOLOL. [Suspect]
     Active Substance: NEBIVOLOL
     Dosage: 140 MG, ADDITIONAL DRUG INFORMATION : OVERDOSE
     Route: 048
     Dates: start: 20200725, end: 20200725
  7. IVABRADINE [Suspect]
     Active Substance: IVABRADINE
     Dosage: 210 MG, ADDITIONAL DRUG INFORMATION : OVERDOSE
     Route: 048
     Dates: start: 20200725, end: 20200725
  8. ATORVASTATIN [Suspect]
     Active Substance: ATORVASTATIN
     Dosage: 480 MG, ADDITIONAL DRUG INFORMATION : OVERDOSE
     Route: 048
     Dates: start: 20200725, end: 20200725

REACTIONS (4)
  - Bradycardia [Recovered/Resolved]
  - Suicide attempt [Recovered/Resolved]
  - Coma [Recovered/Resolved]
  - Intentional overdose [Recovered/Resolved]

NARRATIVE: CASE EVENT DATE: 20200725
